FAERS Safety Report 5400209-4 (Version None)
Quarter: 2007Q3

REPORT INFORMATION
  Report Type: 
  Country: None (occurrence: None)
  Receive Date: 20070727
  Receipt Date: 20070727
  Transmission Date: 20080115
  Serious: Yes (Hospitalization)
  Sender: FDA-Public Use
  Company Number: None

PATIENT
  Sex: Female
  Weight: 83.91 kg

DRUGS (8)
  1. CARBOPLATIN [Suspect]
     Dosage: 658 MG
  2. TAXOL [Suspect]
     Dosage: 175 MG
  3. ACTOS [Concomitant]
  4. ALOXI [Concomitant]
  5. BENADRYL [Concomitant]
  6. COUMADIN [Concomitant]
  7. GLUCOTROL [Concomitant]
  8. TAGAMET [Concomitant]

REACTIONS (1)
  - NEUTROPHIL COUNT ABNORMAL [None]
